FAERS Safety Report 20676573 (Version 1)
Quarter: 2022Q2

REPORT INFORMATION
  Report Type: Report from Study
  Country: BR (occurrence: BR)
  Receive Date: 20220405
  Receipt Date: 20220405
  Transmission Date: 20220721
  Serious: Yes (Disabling)
  Sender: FDA-Public Use
  Company Number: BR-ABBVIE-22K-020-4340745-00

PATIENT
  Sex: Female
  Weight: 109 kg

DRUGS (2)
  1. RINVOQ [Suspect]
     Active Substance: UPADACITINIB
     Indication: Rheumatoid arthritis
     Route: 048
     Dates: start: 20220209
  2. SERTRALINE HYDROCHLORIDE [Suspect]
     Active Substance: SERTRALINE HYDROCHLORIDE
     Indication: Depression
     Route: 065

REACTIONS (15)
  - Mobility decreased [Recovered/Resolved]
  - Depression [Unknown]
  - Incorrect dose administered [Unknown]
  - Weight decreased [Unknown]
  - Product storage error [Unknown]
  - Tremor [Recovering/Resolving]
  - Dizziness [Not Recovered/Not Resolved]
  - Head discomfort [Not Recovered/Not Resolved]
  - Nerve compression [Unknown]
  - Osteitis [Not Recovered/Not Resolved]
  - Inflammation [Recovering/Resolving]
  - Asthenia [Unknown]
  - Arthritis [Unknown]
  - Headache [Recovering/Resolving]
  - Fatigue [Recovering/Resolving]

NARRATIVE: CASE EVENT DATE: 20220101
